FAERS Safety Report 12503262 (Version 1)
Quarter: 2016Q2

REPORT INFORMATION
  Report Type: Spontaneous
  Country: US (occurrence: US)
  Receive Date: 20160628
  Receipt Date: 20160628
  Transmission Date: 20160815
  Serious: No
  Sender: FDA-Public Use
  Company Number: US-FERRINGPH-2015FE03977

PATIENT
  Age: 31 Year
  Sex: Female
  Weight: 65.76 kg

DRUGS (4)
  1. BRAVELLE [Suspect]
     Active Substance: FOLLITROPIN\UROFOLLITROPIN
     Indication: IN VITRO FERTILISATION
     Dosage: 225 IU, DAILY
     Route: 058
     Dates: start: 20151016, end: 20151020
  2. MENOPUR [Concomitant]
     Active Substance: FOLLICLE STIMULATING HORMONE BETA POLYPEPTIDE\LUTROPIN ALFA
     Dosage: 150 IU, DAILY
     Dates: start: 20151021, end: 20151024
  3. MENOPUR [Concomitant]
     Active Substance: FOLLICLE STIMULATING HORMONE BETA POLYPEPTIDE\LUTROPIN ALFA
     Indication: IN VITRO FERTILISATION
     Dosage: 75 IU, DAILY
     Dates: start: 20151016, end: 20151020
  4. BRAVELLE [Suspect]
     Active Substance: FOLLITROPIN\UROFOLLITROPIN
     Dosage: 300 IU, DAILY
     Dates: start: 20151020, end: 20151024

REACTIONS (1)
  - Drug ineffective [Unknown]

NARRATIVE: CASE EVENT DATE: 201510
